FAERS Safety Report 9705527 (Version 1)
Quarter: 2013Q4

REPORT INFORMATION
  Report Type: Spontaneous
  Country: BE (occurrence: BE)
  Receive Date: 20131122
  Receipt Date: 20131122
  Transmission Date: 20140711
  Serious: Yes (Other)
  Sender: FDA-Public Use
  Company Number: PHHY2013BE132725

PATIENT
  Age: 66 Year
  Sex: Female
  Weight: 75 kg

DRUGS (4)
  1. SIMVASTATIN SANDOZ [Suspect]
     Indication: HYPERCHOLESTEROLAEMIA
     Dosage: 20 MG, QD
     Route: 048
     Dates: start: 2013
  2. NOLVADEX D [Interacting]
     Dosage: 20 MG, QD
     Route: 048
     Dates: start: 20130429
  3. NOLVADEX D [Interacting]
     Dosage: 20 MG, QD
     Route: 048
     Dates: start: 201306
  4. ESOMEPRAZOLE [Concomitant]
     Indication: GASTROOESOPHAGEAL REFLUX DISEASE
     Dosage: 20 MG, QD
     Route: 048
     Dates: start: 201302

REACTIONS (2)
  - Muscle spasms [Recovering/Resolving]
  - Drug interaction [Recovering/Resolving]
